FAERS Safety Report 12839510 (Version 1)
Quarter: 2016Q4

REPORT INFORMATION
  Report Type: Spontaneous
  Country: US (occurrence: US)
  Receive Date: 20161011
  Receipt Date: 20161011
  Transmission Date: 20170207
  Serious: Yes (Other)
  Sender: FDA-Public Use
  Company Number: None

PATIENT
  Age: 21 Year
  Sex: Female
  Weight: 49.5 kg

DRUGS (3)
  1. OVCON [Concomitant]
  2. HYOSCYAMINE SULFATE VIRTUS PHARMACEUTICALS [Suspect]
     Active Substance: HYOSCYAMINE\HYOSCYAMINE SULFATE
     Indication: IRRITABLE BOWEL SYNDROME
     Dosage: ?          QUANTITY:1 TABLET(S);?
     Route: 060
     Dates: start: 20160913, end: 20160918
  3. DEXLANT [Concomitant]

REACTIONS (7)
  - Dizziness [None]
  - Dysphagia [None]
  - Confusional state [None]
  - Dysarthria [None]
  - Dysuria [None]
  - Headache [None]
  - Dry mouth [None]

NARRATIVE: CASE EVENT DATE: 20160918
